FAERS Safety Report 18021106 (Version 2)
Quarter: 2020Q3

REPORT INFORMATION
  Report Type: Spontaneous
  Country: US (occurrence: US)
  Receive Date: 20200714
  Receipt Date: 20200803
  Transmission Date: 20201103
  Serious: Yes (Death, Other)
  Sender: FDA-Public Use
  Company Number: US-GILEAD-2020-0482495

PATIENT
  Age: 40 Year
  Sex: Female
  Weight: 140 kg

DRUGS (13)
  1. BUDESONIDE. [Concomitant]
     Active Substance: BUDESONIDE
  2. CARBOXYMETHYLCELLULOSE [Concomitant]
     Active Substance: CARBOXYMETHYLCELLULOSE
     Indication: DRY EYE
     Dosage: UNK
     Route: 047
     Dates: start: 20200701, end: 20200704
  3. AZTREONAM. [Concomitant]
     Active Substance: AZTREONAM
     Indication: BACTERIAL INFECTION
     Dosage: UNK
     Route: 042
     Dates: start: 20200630, end: 20200706
  4. GABAPENTIN. [Concomitant]
     Active Substance: GABAPENTIN
     Indication: SEDATION
     Dosage: UNK
     Route: 048
     Dates: start: 20200701, end: 20200706
  5. IPRATROPIUM BROMIDE AND ALBUTEROL SULFATE [Concomitant]
     Active Substance: ALBUTEROL SULFATE\IPRATROPIUM BROMIDE
  6. CISATRACURIUM. [Concomitant]
     Active Substance: CISATRACURIUM
     Indication: PARALYSIS
     Dosage: UNK
     Route: 042
     Dates: start: 20200701, end: 20200706
  7. NOREPINEPHRINE. [Concomitant]
     Active Substance: NOREPINEPHRINE
  8. FENTANYL. [Concomitant]
     Active Substance: FENTANYL
     Indication: SEDATION
     Dosage: UNK
     Route: 042
     Dates: start: 20200701, end: 20200706
  9. PROPOFOL. [Concomitant]
     Active Substance: PROPOFOL
     Indication: SEDATION
     Dosage: UNK
     Route: 042
     Dates: start: 20200701, end: 20200706
  10. REMDESIVIR. [Suspect]
     Active Substance: REMDESIVIR
     Indication: COVID-19
     Dosage: 100 MG, QD
     Route: 042
     Dates: start: 20200701, end: 20200702
  11. MIDAZOLAM. [Concomitant]
     Active Substance: MIDAZOLAM
     Indication: SEDATION
     Dosage: UNK
     Route: 042
     Dates: start: 20200701, end: 20200706
  12. INSULIN [Concomitant]
     Active Substance: INSULIN NOS
  13. KETAMINE [Concomitant]
     Active Substance: KETAMINE

REACTIONS (1)
  - Death [Fatal]

NARRATIVE: CASE EVENT DATE: 20200706
